FAERS Safety Report 13930639 (Version 2)
Quarter: 2017Q3

REPORT INFORMATION
  Report Type: Spontaneous
  Country: JP (occurrence: JP)
  Receive Date: 20170901
  Receipt Date: 20170918
  Transmission Date: 20171127
  Serious: Yes (Other)
  Sender: FDA-Public Use
  Company Number: JP-PFIZER INC-2017378535

PATIENT
  Age: 73 Year
  Sex: Female

DRUGS (13)
  1. GASTER [Concomitant]
     Active Substance: FAMOTIDINE
     Dosage: UNK UNK, UNKNOWN FREQ.
     Route: 065
  2. HALCION [Concomitant]
     Active Substance: TRIAZOLAM
     Dosage: UNK UNK, UNKNOWN FREQ.
     Route: 065
  3. ARICEPT [Concomitant]
     Active Substance: DONEPEZIL HYDROCHLORIDE
     Dosage: UNK UNK, UNKNOWN FREQ.
     Route: 065
  4. CELECOX [Suspect]
     Active Substance: CELECOXIB
     Dosage: UNK UNK, UNKNOWN FREQ.
     Route: 048
  5. OPALMON [Suspect]
     Active Substance: LIMAPROST
     Dosage: UNK UNK, UNKNOWN FREQ.
     Route: 065
  6. VESICARE [Concomitant]
     Active Substance: SOLIFENACIN SUCCINATE
     Dosage: UNK UNK, UNKNOWN FREQ.
     Route: 065
  7. VIVIANT [Concomitant]
     Active Substance: BAZEDOXIFENE
     Dosage: UNK UNK, UNKNOWN FREQ.
     Route: 065
  8. METHYCOBAL [Concomitant]
     Active Substance: METHYLCOBALAMIN
     Dosage: UNK UNK, UNKNOWN FREQ.
     Route: 065
  9. LOXONIN [Concomitant]
     Active Substance: LOXOPROFEN SODIUM
     Dosage: UNK UNK, UNKNOWN FREQ.
     Route: 065
  10. GOSHAJINKIGAN [Suspect]
     Active Substance: HERBALS
     Dosage: UNK UNK, UNKNOWN FREQ.
     Route: 065
  11. CRESTOR [Concomitant]
     Active Substance: ROSUVASTATIN CALCIUM
     Dosage: UNK UNK, UNKNOWN FREQ.
     Route: 065
  12. SHAKUYAKUKANZOTO [Concomitant]
     Active Substance: HERBALS
     Dosage: UNK UNK, UNKNOWN FREQ.
     Route: 065
  13. ALLEGRA [Concomitant]
     Active Substance: FEXOFENADINE HYDROCHLORIDE
     Dosage: UNK UNK, UNKNOWN FREQ.
     Route: 065

REACTIONS (1)
  - Loss of consciousness [Recovered/Resolved]

NARRATIVE: CASE EVENT DATE: 20170823
